FAERS Safety Report 7564953-5 (Version None)
Quarter: 2011Q2

REPORT INFORMATION
  Report Type: 
  Country: None (occurrence: None)
  Receive Date: 20110622
  Receipt Date: 20110314
  Transmission Date: 20111010
  Serious: Yes (Other)
  Sender: FDA-Public Use
  Company Number: US-MYLANLABS-2011S1004291

PATIENT
  Age: 14 Year
  Sex: Female
  Weight: 58.51 kg

DRUGS (4)
  1. CLOZAPINE [Suspect]
     Indication: MENTAL RETARDATION
     Route: 048
     Dates: end: 20110201
  2. PROPRANOLOL HYDROCHLORIDE [Concomitant]
  3. CLOZAPINE [Suspect]
     Indication: MOOD DISORDER DUE TO A GENERAL MEDICAL CONDITION
     Route: 048
     Dates: end: 20110201
  4. FLONASE [Concomitant]

REACTIONS (2)
  - GRANULOCYTOPENIA [None]
  - DRUG INEFFECTIVE FOR UNAPPROVED INDICATION [None]
